FAERS Safety Report 10298782 (Version 2)
Quarter: 2014Q3

REPORT INFORMATION
  Report Type: Spontaneous
  Country: RO (occurrence: RO)
  Receive Date: 20140711
  Receipt Date: 20140729
  Transmission Date: 20150326
  Serious: Yes (Life-Threatening, Hospitalization, Other)
  Sender: FDA-Public Use
  Company Number: RO-ABBVIE-14P-135-1256834-00

PATIENT
  Age: 26 Year
  Sex: Male
  Weight: 90 kg

DRUGS (1)
  1. HUMIRA [Suspect]
     Active Substance: ADALIMUMAB
     Indication: PSORIASIS
     Route: 058
     Dates: start: 201208, end: 20140625

REACTIONS (2)
  - Pulmonary tuberculosis [Recovering/Resolving]
  - Polyomavirus test positive [Recovering/Resolving]

NARRATIVE: CASE EVENT DATE: 20140625
